FAERS Safety Report 7966825-0 (Version None)
Quarter: 2011Q4

REPORT INFORMATION
  Report Type: 
  Country: None (occurrence: None)
  Receive Date: 20111209
  Receipt Date: 20111130
  Transmission Date: 20120403
  Serious: No
  Sender: FDA-Public Use
  Company Number: US-BIOGENIDEC-2011BI045370

PATIENT
  Age: 44 Year
  Sex: Female

DRUGS (2)
  1. AVONEX [Suspect]
     Indication: MULTIPLE SCLEROSIS
     Route: 030
     Dates: start: 20110824
  2. NAPROXEN (ALEVE) [Concomitant]
     Indication: PREMEDICATION
     Route: 048
     Dates: start: 20110901

REACTIONS (4)
  - INFLUENZA LIKE ILLNESS [None]
  - DIARRHOEA [None]
  - VOMITING [None]
  - PYREXIA [None]
